FAERS Safety Report 6111201-9 (Version None)
Quarter: 2009Q1

REPORT INFORMATION
  Report Type: 
  Country: None (occurrence: None)
  Receive Date: 20090311
  Receipt Date: 20090304
  Transmission Date: 20090719
  Serious: Yes (Other)
  Sender: FDA-Public Use
  Company Number: US-GILEAD-2009-0020688

PATIENT
  Sex: Male
  Weight: 99.88 kg

DRUGS (9)
  1. LETAIRIS [Suspect]
     Indication: PULMONARY ARTERIAL HYPERTENSION
     Route: 048
     Dates: start: 20071114
  2. VENTAVIS [Concomitant]
  3. REVATIO [Concomitant]
  4. LIPITOR [Concomitant]
  5. SPIRONOLACTONE [Concomitant]
  6. TORSEMIDE [Concomitant]
  7. NEURONTIN [Concomitant]
  8. CITALOPRAM HYDROBROMIDE [Concomitant]
  9. KLOR-CON [Concomitant]

REACTIONS (1)
  - SYNCOPE [None]
